FAERS Safety Report 6972468-8 (Version None)
Quarter: 2010Q3

REPORT INFORMATION
  Report Type: 
  Country: None (occurrence: None)
  Receive Date: 20100908
  Receipt Date: 20100908
  Transmission Date: 20110219
  Serious: Yes (Other)
  Sender: FDA-Public Use
  Company Number: None

PATIENT
  Sex: Female
  Weight: 52.1637 kg

DRUGS (1)
  1. VESICARE [Suspect]
     Dosage: 5 MG Q12H 047 (3 DAYS, 1 PO THE 1 @ 1-2 DAYS. TOTAL 20 TABS)
     Route: 048

REACTIONS (3)
  - CONSTIPATION [None]
  - GASTROINTESTINAL PAIN [None]
  - OBSTRUCTION [None]
